FAERS Safety Report 4847316-2 (Version None)
Quarter: 2005Q4

REPORT INFORMATION
  Report Type: 
  Country: None (occurrence: None)
  Receive Date: 20051207
  Receipt Date: 20051201
  Transmission Date: 20060501
  Serious: Yes (Hospitalization)
  Sender: FDA-Public Use
  Company Number: US-BRISTOL-MYERS SQUIBB COMPANY-13201116

PATIENT
  Age: 79 Year
  Sex: Female
  Weight: 98 kg

DRUGS (13)
  1. GLUCOPHAGE [Suspect]
     Indication: DIABETES MELLITUS
     Dates: start: 19990601
  2. ALLEGRA [Concomitant]
  3. NEXIUM [Concomitant]
  4. ASCORBIC ACID [Concomitant]
  5. DARVON [Concomitant]
  6. ANTIVERT [Concomitant]
  7. LANOXIN [Concomitant]
  8. ALDACTONE [Concomitant]
  9. LIPITOR [Concomitant]
  10. LIBRAX [Concomitant]
  11. MAG-OX [Concomitant]
  12. RHINOCORT [Concomitant]
     Route: 045
  13. INSULIN [Concomitant]
     Dates: start: 20050928, end: 20051013

REACTIONS (4)
  - ABSCESS INTESTINAL [None]
  - BLOOD GLUCOSE FLUCTUATION [None]
  - COLON OPERATION [None]
  - DIARRHOEA [None]
